FAERS Safety Report 8801349 (Version 2)
Quarter: 2013Q1

REPORT INFORMATION
  Report Type: Spontaneous
  Country: FR (occurrence: FR)
  Receive Date: 20120921
  Receipt Date: 20130104
  Transmission Date: 20140127
  Serious: Yes (Life-Threatening, Hospitalization)
  Sender: FDA-Public Use
  Company Number: FR-NOVOPROD-359947

PATIENT
  Age: 56 Year
  Sex: Male
  Weight: 77 kg

DRUGS (5)
  1. VICTOZA [Suspect]
     Indication: TYPE 2 DIABETES MELLITUS
     Dosage: 1.8 MG, QD
     Route: 065
     Dates: start: 20120103, end: 20120906
  2. GLUCOPHAGE [Concomitant]
     Indication: TYPE 2 DIABETES MELLITUS
     Dosage: 1750 MG, QD
     Route: 048
     Dates: start: 1998
  3. DAONIL [Concomitant]
     Indication: TYPE 2 DIABETES MELLITUS
     Dosage: 15 MG, QD
     Route: 048
     Dates: start: 1999
  4. ZYPREXA [Concomitant]
     Indication: BIPOLAR I DISORDER
     Dosage: 5 MG, QD
     Route: 048
  5. TERALITHE [Concomitant]
     Indication: BIPOLAR I DISORDER
     Dosage: 400 MG, QD
     Route: 048

REACTIONS (1)
  - Pancreatic carcinoma metastatic [Not Recovered/Not Resolved]
